FAERS Safety Report 4422804-1 (Version None)
Quarter: 2004Q3

REPORT INFORMATION
  Report Type: 
  Country: None (occurrence: None)
  Receive Date: 20040719
  Receipt Date: 20040120
  Transmission Date: 20050211
  Serious: Yes (Life-Threatening, Hospitalization)
  Sender: FDA-Public Use
  Company Number: M04-INT-007

PATIENT
  Sex: Female

DRUGS (2)
  1. INTEGRILIN [Suspect]
     Indication: ACUTE MYOCARDIAL INFARCTION
     Dosage: SEE IMAGE
     Dates: start: 20040119
  2. HEPARIN SOLUTION (EXCEPT SYRUP) [Concomitant]

REACTIONS (2)
  - HYPOTENSION [None]
  - RETROPERITONEAL HAEMORRHAGE [None]
